FAERS Safety Report 6933113-0 (Version None)
Quarter: 2010Q3

REPORT INFORMATION
  Report Type: 
  Country: None (occurrence: None)
  Receive Date: 20100819
  Receipt Date: 20100806
  Transmission Date: 20110219
  Serious: Yes (Death, Hospitalization, Other)
  Sender: FDA-Public Use
  Company Number: US-ELI_LILLY_AND_COMPANY-US201007003238

PATIENT
  Sex: Female
  Weight: 39.909 kg

DRUGS (4)
  1. FORTEO [Suspect]
     Indication: OSTEOPOROSIS
     Dosage: 20 UG, DAILY (1/D)
     Dates: start: 20090501
  2. VITAMIN D [Concomitant]
  3. TYLENOL (CAPLET) [Concomitant]
  4. CALCIUM [Concomitant]

REACTIONS (7)
  - CEREBRAL INFARCTION [None]
  - DEATH [None]
  - DIET REFUSAL [None]
  - LOSS OF CONSCIOUSNESS [None]
  - MOBILITY DECREASED [None]
  - PERICARDIAL EFFUSION [None]
  - PULMONARY OEDEMA [None]
